FAERS Safety Report 6106496-1 (Version None)
Quarter: 2009Q1

REPORT INFORMATION
  Report Type: 
  Country: None (occurrence: None)
  Receive Date: 20090306
  Receipt Date: 20090210
  Transmission Date: 20090719
  Serious: Yes (Hospitalization, Other)
  Sender: FDA-Public Use
  Company Number: US-BAXTER-2008BH013048

PATIENT
  Age: 64 Year
  Sex: Female
  Weight: 61 kg

DRUGS (7)
  1. HEPARIN SODIUM INJECTION [Suspect]
     Indication: PROPHYLAXIS
     Route: 058
     Dates: start: 20071013, end: 20071018
  2. HEPARIN SODIUM INJECTION [Suspect]
     Indication: THROMBOSIS PROPHYLAXIS
     Route: 058
     Dates: start: 20071013, end: 20071018
  3. HEPARIN SODIUM 1,000 UNITS AND SODIUM CHLORIDE 0.9% [Suspect]
     Indication: CORONARY ARTERY BYPASS
     Route: 065
     Dates: start: 20071009, end: 20071009
  4. HEPARIN SODIUM 1,000 UNITS AND SODIUM CHLORIDE 0.9% [Suspect]
     Route: 065
     Dates: start: 20071009, end: 20071009
  5. HEPARIN SODIUM 1,000 UNITS AND SODIUM CHLORIDE 0.9% [Suspect]
     Route: 065
     Dates: start: 20071009, end: 20071009
  6. SYNTHROID [Concomitant]
     Indication: DRUG USE FOR UNKNOWN INDICATION
     Route: 065
  7. SYNTHROID [Concomitant]
     Route: 065

REACTIONS (11)
  - AMNESIA [None]
  - CEREBRAL INFARCTION [None]
  - COMA [None]
  - EMOTIONAL DISTRESS [None]
  - HEPARIN-INDUCED THROMBOCYTOPENIA [None]
  - LIMB TRAUMATIC AMPUTATION [None]
  - MOBILITY DECREASED [None]
  - RESPIRATORY DISTRESS [None]
  - SCAR [None]
  - WOUND DEHISCENCE [None]
  - WOUND INFECTION [None]
